FAERS Safety Report 4948580-1 (Version None)
Quarter: 2006Q1

REPORT INFORMATION
  Report Type: 
  Country: None (occurrence: None)
  Receive Date: 20060320
  Receipt Date: 20050314
  Transmission Date: 20060701
  Serious: Yes (Hospitalization)
  Sender: FDA-Public Use
  Company Number: US-MERCK-0503USA02910

PATIENT
  Age: 73 Year
  Sex: Male
  Weight: 80 kg

DRUGS (3)
  1. VIOXX [Suspect]
     Indication: ARTHRITIS
     Route: 048
     Dates: start: 19991201, end: 20040101
  2. VERAPAMIL [Concomitant]
     Indication: ARRHYTHMIA
     Route: 065
  3. ASPIRIN [Concomitant]
     Route: 065
     Dates: start: 20020101

REACTIONS (19)
  - ABDOMINAL ADHESIONS [None]
  - ARTERIOSCLEROSIS [None]
  - ARTHROPATHY [None]
  - BASAL CELL CARCINOMA [None]
  - CARDIAC DISORDER [None]
  - CARPAL TUNNEL SYNDROME [None]
  - CHOLECYSTITIS [None]
  - CHOLELITHIASIS [None]
  - ECHOCARDIOGRAM ABNORMAL [None]
  - HEPATIC CIRRHOSIS [None]
  - HEPATIC STEATOSIS [None]
  - HYPERTENSION [None]
  - LIVER FUNCTION TEST ABNORMAL [None]
  - LOBAR PNEUMONIA [None]
  - MYOCARDIAL INFARCTION [None]
  - PROSTATE CANCER [None]
  - SHOULDER PAIN [None]
  - SKIN DISORDER [None]
  - SYNCOPE [None]
